FAERS Safety Report 9370256 (Version 1)
Quarter: 2013Q2

REPORT INFORMATION
  Report Type: Spontaneous
  Country: US (occurrence: US)
  Receive Date: 20130626
  Receipt Date: 20130626
  Transmission Date: 20140414
  Serious: Yes (Other)
  Sender: FDA-Public Use
  Company Number: US-ASTRAZENECA-2013SE47052

PATIENT
  Age: 58 Year
  Sex: Female
  Weight: 73.9 kg

DRUGS (5)
  1. NEXIUM [Suspect]
     Indication: GASTROOESOPHAGEAL REFLUX DISEASE
     Route: 048
     Dates: start: 2011
  2. SYNTHYROID [Concomitant]
     Indication: HYPOTHYROIDISM
     Route: 048
     Dates: start: 2005
  3. LORAZEPAM [Concomitant]
     Indication: ANXIETY
     Route: 048
  4. C-PROGESTRONE 50 [Concomitant]
     Indication: HORMONE THERAPY
     Route: 061
  5. ESTRADIOL [Concomitant]
     Indication: HORMONE THERAPY
     Route: 061

REACTIONS (14)
  - Haematochezia [Unknown]
  - Rectal fissure [Unknown]
  - Abdominal distension [Unknown]
  - Mucous stools [Unknown]
  - Abnormal faeces [Unknown]
  - Faeces hard [Unknown]
  - Cold sweat [Unknown]
  - Haemorrhoids [Unknown]
  - Abdominal pain upper [Unknown]
  - Constipation [Unknown]
  - Flatulence [Unknown]
  - Eructation [Unknown]
  - Vomiting [Unknown]
  - Diarrhoea [Unknown]
